FAERS Safety Report 24399254 (Version 1)
Quarter: 2024Q4

REPORT INFORMATION
  Report Type: Spontaneous
  Country: US (occurrence: US)
  Receive Date: 20241004
  Receipt Date: 20241004
  Transmission Date: 20250115
  Serious: Yes (Other)
  Sender: MERCK
  Company Number: US-009507513-2410USA001711

PATIENT
  Sex: Male

DRUGS (1)
  1. KEYTRUDA [Suspect]
     Active Substance: PEMBROLIZUMAB
     Indication: Oligodendroglioma
     Dosage: 1 CYCLE

REACTIONS (4)
  - Colitis microscopic [Unknown]
  - Immune-mediated enterocolitis [Unknown]
  - Lymphocytic oesophagitis [Unknown]
  - Reactive gastropathy [Unknown]
